FAERS Safety Report 23383988 (Version 4)
Quarter: 2024Q2

REPORT INFORMATION
  Report Type: Spontaneous
  Country: IT (occurrence: IT)
  Receive Date: 20240109
  Receipt Date: 20240506
  Transmission Date: 20240716
  Serious: Yes (Hospitalization, Other)
  Sender: FDA-Public Use
  Company Number: IT-DSJP-DSE-2024-100501

PATIENT
  Age: 87 Year
  Sex: Male

DRUGS (13)
  1. EDOXABAN [Suspect]
     Active Substance: EDOXABAN
     Indication: Atrial fibrillation
     Dosage: 30 MG
     Route: 048
     Dates: start: 20211124, end: 20231022
  2. EDOXABAN [Suspect]
     Active Substance: EDOXABAN
     Indication: Prophylaxis
     Dosage: UNK
     Route: 048
     Dates: start: 20231115, end: 20231120
  3. EDOXABAN [Suspect]
     Active Substance: EDOXABAN
     Dosage: 30 MG, QD
     Route: 048
     Dates: start: 20231121
  4. ACORAMIDIS [Suspect]
     Active Substance: ACORAMIDIS
     Indication: Cardiac amyloidosis
     Dosage: 30 MG
     Route: 048
     Dates: start: 20220817
  5. TRAUSAN [Concomitant]
     Indication: Depression
     Dosage: 1000 MG, QD
     Route: 048
     Dates: start: 20220901
  6. LEVETIRACETAM [Concomitant]
     Active Substance: LEVETIRACETAM
     Indication: Depression
     Dosage: 750 MG, QD
     Route: 048
     Dates: start: 20220915
  7. SEDANAM [Concomitant]
     Indication: Depression
     Dosage: 20 DROPS (1TO3 TIMES D)
     Route: 048
     Dates: start: 20220915
  8. ALLOPURINOL [Concomitant]
     Active Substance: ALLOPURINOL
     Indication: Hyperuricaemia
     Dosage: 150 MG, QD
     Route: 048
     Dates: start: 20221003
  9. TOUJEO [Concomitant]
     Active Substance: INSULIN GLARGINE
     Indication: Diabetes mellitus
     Dosage: 12 IU, QD
     Route: 062
     Dates: start: 20230808
  10. DAPAGLIFLOZIN [Concomitant]
     Active Substance: DAPAGLIFLOZIN
     Indication: Diabetes mellitus
     Dosage: 10 MG, QD
     Route: 048
     Dates: start: 20230808
  11. CANRENONE [Concomitant]
     Active Substance: CANRENONE
     Indication: Cardiac failure
     Dosage: 25 MG
     Route: 048
     Dates: start: 2015
  12. ALPRAZOLAM [Concomitant]
     Active Substance: ALPRAZOLAM
     Indication: Cognitive disorder
     Dosage: 0.25 MG, BID
     Route: 048
     Dates: start: 20211106
  13. FUROSEMIDE [Concomitant]
     Active Substance: FUROSEMIDE
     Indication: Cardiac failure
     Dosage: 125 MG
     Route: 048
     Dates: start: 20220307

REACTIONS (5)
  - Femur fracture [Recovered/Resolved]
  - Colitis ischaemic [Unknown]
  - Rectal haemorrhage [Recovered/Resolved]
  - Rectal haemorrhage [Recovered/Resolved]
  - COVID-19 [Unknown]

NARRATIVE: CASE EVENT DATE: 20231011
